FAERS Safety Report 4748911-1 (Version None)
Quarter: 2005Q3

REPORT INFORMATION
  Report Type: 
  Country: None (occurrence: None)
  Receive Date: 20050819
  Receipt Date: 20050712
  Transmission Date: 20060218
  Serious: Yes (Death, Other)
  Sender: FDA-Public Use
  Company Number: US-BRISTOL-MYERS SQUIBB COMPANY-13034863

PATIENT
  Age: 72 Year
  Sex: Female

DRUGS (7)
  1. COUMADIN [Suspect]
     Indication: PULMONARY EMBOLISM
     Route: 048
     Dates: start: 20040820, end: 20050104
  2. CISPLATIN [Concomitant]
     Indication: CHEMOTHERAPY
  3. SYNTHROID [Concomitant]
  4. PROVENTIL [Concomitant]
  5. PROCRIT [Concomitant]
     Route: 058
  6. CALAN [Concomitant]
  7. ETOPOSIDE [Concomitant]
     Indication: CHEMOTHERAPY

REACTIONS (4)
  - CEREBROVASCULAR ACCIDENT [None]
  - MENTAL STATUS CHANGES [None]
  - METASTASES TO CENTRAL NERVOUS SYSTEM [None]
  - SMALL CELL LUNG CANCER STAGE UNSPECIFIED [None]
